FAERS Safety Report 14991543 (Version 4)
Quarter: 2018Q4

REPORT INFORMATION
  Report Type: Spontaneous
  Country: US (occurrence: US)
  Receive Date: 20180608
  Receipt Date: 20181009
  Transmission Date: 20190204
  Serious: Yes (Other)
  Sender: FDA-Public Use
  Company Number: US-GLAXOSMITHKLINE-US2018099789

PATIENT
  Age: 60 Year
  Sex: Female
  Weight: 113.8 kg

DRUGS (13)
  1. BREO ELLIPTA [Suspect]
     Active Substance: FLUTICASONE FUROATE\VILANTEROL TRIFENATATE
     Indication: ASTHMA
     Dosage: 200/25 MCG.
     Route: 055
     Dates: start: 2016
  2. LOSARTAN POTASSIUM/HYDROCHLOROTHIAZIDE [Concomitant]
     Active Substance: HYDROCHLOROTHIAZIDE\LOSARTAN POTASSIUM
  3. ALLEGRA [Concomitant]
     Active Substance: FEXOFENADINE HYDROCHLORIDE
  4. ESTRADIOL. [Concomitant]
     Active Substance: ESTRADIOL
  5. OMEPRAZOLE. [Concomitant]
     Active Substance: OMEPRAZOLE
  6. TOPIRAMATE. [Concomitant]
     Active Substance: TOPIRAMATE
  7. BREO ELLIPTA [Suspect]
     Active Substance: FLUTICASONE FUROATE\VILANTEROL TRIFENATATE
  8. FLUTICASONE NASAL SPRAY [Concomitant]
     Active Substance: FLUTICASONE
  9. OESTRADIOL [Concomitant]
     Active Substance: ESTROGENS
  10. BREO ELLIPTA [Suspect]
     Active Substance: FLUTICASONE FUROATE\VILANTEROL TRIFENATATE
  11. MELOXICAM. [Concomitant]
     Active Substance: MELOXICAM
  12. BREO ELLIPTA [Suspect]
     Active Substance: FLUTICASONE FUROATE\VILANTEROL TRIFENATATE
     Dosage: 200/25 MCG.
     Route: 055
     Dates: start: 2016
  13. VENTOLIN HFA [Concomitant]
     Active Substance: ALBUTEROL SULFATE

REACTIONS (7)
  - Chest discomfort [Recovering/Resolving]
  - Product complaint [Unknown]
  - Dyspnoea [Recovering/Resolving]
  - Dysphonia [Not Recovered/Not Resolved]
  - Product use issue [Unknown]
  - Shoulder operation [Recovered/Resolved]
  - Pulmonary pain [Recovering/Resolving]

NARRATIVE: CASE EVENT DATE: 2017
